FAERS Safety Report 5343407-0 (Version None)
Quarter: 2007Q2

REPORT INFORMATION
  Report Type: 
  Country: None (occurrence: None)
  Receive Date: 20070531
  Receipt Date: 20070518
  Transmission Date: 20071010
  Serious: Yes (Other)
  Sender: FDA-Public Use
  Company Number: GXKR2006BR04507

PATIENT
  Age: 37 Year
  Sex: Female
  Weight: 63 kg

DRUGS (3)
  1. RIFAMIPICIN (NGX) (RIFAMIPICIN) TABLET, 300 MG [Suspect]
     Indication: LEPROSY
     Dosage: 1 TABLET, QD, ORAL
     Route: 048
     Dates: start: 20060509, end: 20060510
  2. DAPSONE [Suspect]
     Indication: LEPROSY
     Dosage: ORAL
     Route: 048
     Dates: start: 20060509, end: 20060510
  3. CLOFAZIMINE (CLOFAZIMINE) UNKNOWN [Suspect]
     Indication: LEPROSY
     Dosage: ORAL
     Route: 048
     Dates: start: 20060509, end: 20060510

REACTIONS (18)
  - ABDOMINAL PAIN UPPER [None]
  - ALANINE AMINOTRANSFERASE INCREASED [None]
  - ASPARTATE AMINOTRANSFERASE INCREASED [None]
  - BLOOD ALKALINE PHOSPHATASE DECREASED [None]
  - BLOOD BILIRUBIN ABNORMAL [None]
  - BLOOD GLUCOSE DECREASED [None]
  - BLOOD SODIUM DECREASED [None]
  - CYANOSIS [None]
  - DISCOMFORT [None]
  - DRUG INTOLERANCE [None]
  - FATIGUE [None]
  - HAEMATOCRIT INCREASED [None]
  - MEAN CELL HAEMOGLOBIN CONCENTRATION DECREASED [None]
  - MEAN CELL VOLUME INCREASED [None]
  - METHAEMOGLOBINAEMIA [None]
  - NAUSEA [None]
  - PALLOR [None]
  - TACHYCARDIA [None]
